FAERS Safety Report 6711945-1 (Version None)
Quarter: 2010Q2

REPORT INFORMATION
  Report Type: 
  Country: None (occurrence: None)
  Receive Date: 20100505
  Receipt Date: 20100503
  Transmission Date: 20101027
  Serious: Yes (Other)
  Sender: FDA-Public Use
  Company Number: US-BRISTOL-MYERS SQUIBB COMPANY-15088313

PATIENT
  Age: 9 Year
  Sex: Male

DRUGS (3)
  1. ABILIFY [Suspect]
  2. FOCALIN [Concomitant]
     Dosage: FOCALIN XR 20MG
  3. ZOLOFT [Concomitant]
     Dosage: ZOLOFT 25MG

REACTIONS (2)
  - CENTRAL NERVOUS SYSTEM INFECTION [None]
  - TARDIVE DYSKINESIA [None]
